FAERS Safety Report 6439129-5 (Version None)
Quarter: 2009Q4

REPORT INFORMATION
  Report Type: 
  Country: None (occurrence: None)
  Receive Date: 20091112
  Receipt Date: 20090415
  Transmission Date: 20100525
  Serious: Yes (Other)
  Sender: FDA-Public Use
  Company Number: 2009BH006340

PATIENT
  Sex: Female

DRUGS (17)
  1. GAMMAGARD LIQUID [Suspect]
     Indication: IMMUNODEFICIENCY
     Dosage: ONCE IV
     Route: 042
     Dates: start: 20080912, end: 20080912
  2. GAMMAGARD LIQUID [Suspect]
     Indication: RESPIRATORY TRACT INFECTION
     Dosage: ONCE IV
     Route: 042
     Dates: start: 20080912, end: 20080912
  3. GAMMAGARD LIQUID [Suspect]
     Indication: SKIN INFECTION
     Dosage: ONCE IV
     Route: 042
     Dates: start: 20080912, end: 20080912
  4. GAMMAGARD LIQUID [Suspect]
     Indication: IMMUNODEFICIENCY
     Dosage: ONCE IV
     Route: 042
     Dates: start: 20081009, end: 20081009
  5. GAMMAGARD LIQUID [Suspect]
     Indication: RESPIRATORY TRACT INFECTION
     Dosage: ONCE IV
     Route: 042
     Dates: start: 20081009, end: 20081009
  6. GAMMAGARD LIQUID [Suspect]
     Indication: SKIN INFECTION
     Dosage: ONCE IV
     Route: 042
     Dates: start: 20081009, end: 20081009
  7. GAMMAGARD LIQUID [Suspect]
     Indication: IMMUNODEFICIENCY
     Dosage: ONCE IV
     Route: 042
     Dates: start: 20081106, end: 20081106
  8. GAMMAGARD LIQUID [Suspect]
     Indication: RESPIRATORY TRACT INFECTION
     Dosage: ONCE IV
     Route: 042
     Dates: start: 20081106, end: 20081106
  9. GAMMAGARD LIQUID [Suspect]
     Indication: SKIN INFECTION
     Dosage: ONCE IV
     Route: 042
     Dates: start: 20081106, end: 20081106
  10. GAMMAGARD LIQUID [Suspect]
     Indication: IMMUNODEFICIENCY
     Dosage: ONCE IV
     Route: 042
     Dates: start: 20081204, end: 20081204
  11. GAMMAGARD LIQUID [Suspect]
     Indication: RESPIRATORY TRACT INFECTION
     Dosage: ONCE IV
     Route: 042
     Dates: start: 20081204, end: 20081204
  12. GAMMAGARD LIQUID [Suspect]
     Indication: SKIN INFECTION
     Dosage: ONCE IV
     Route: 042
     Dates: start: 20081204, end: 20081204
  13. GAMMAGARD LIQUID [Suspect]
     Indication: IMMUNODEFICIENCY
     Dosage: ONCE IV
     Route: 042
     Dates: start: 20090211, end: 20090211
  14. GAMMAGARD LIQUID [Suspect]
     Indication: RESPIRATORY TRACT INFECTION
     Dosage: ONCE IV
     Route: 042
     Dates: start: 20090211, end: 20090211
  15. GAMMAGARD LIQUID [Suspect]
     Indication: SKIN INFECTION
     Dosage: ONCE IV
     Route: 042
     Dates: start: 20090211, end: 20090211
  16. FLUDROCORTISONE [Concomitant]
  17. CORTISONE [Concomitant]

REACTIONS (1)
  - MENINGITIS ASEPTIC [None]
